FAERS Safety Report 10614080 (Version 1)
Quarter: 2014Q4

REPORT INFORMATION
  Report Type: Spontaneous
  Country: GB (occurrence: GB)
  Receive Date: 20141128
  Receipt Date: 20141128
  Transmission Date: 20150529
  Serious: Yes (Other)
  Sender: FDA-Public Use
  Company Number: GB-ABBOTT-14X-167-1199064-00

PATIENT
  Age: 60 Year
  Sex: Female

DRUGS (2)
  1. INFLUENZA VACCINE INACTIVATED [Suspect]
     Active Substance: INFLUENZA VIRUS VACCINE
     Indication: IMMUNISATION
     Route: 065
     Dates: start: 20141021, end: 20141021
  2. ARYTHMOL [Suspect]
     Active Substance: PROPAFENONE HYDROCHLORIDE
     Indication: CARDIAC DISORDER
     Dosage: 150 MG

REACTIONS (3)
  - Dyspnoea [Unknown]
  - Malaise [Unknown]
  - Aphasia [Unknown]

NARRATIVE: CASE EVENT DATE: 20141021
